FAERS Safety Report 10591852 (Version 2)
Quarter: 2014Q4

REPORT INFORMATION
  Report Type: Report from Study
  Country: US (occurrence: US)
  Receive Date: 20141119
  Receipt Date: 20141125
  Transmission Date: 20150529
  Serious: Yes (Other)
  Sender: FDA-Public Use
  Company Number: US-ROCHE-1491075

PATIENT

DRUGS (3)
  1. IMATINIB [Suspect]
     Active Substance: IMATINIB
     Indication: CHRONIC MYELOID LEUKAEMIA
     Dosage: FOR 30 DAYS
     Route: 048
  2. PEGINTERFERON ALFA-2A [Suspect]
     Active Substance: PEGINTERFERON ALFA-2A
     Indication: CHRONIC MYELOID LEUKAEMIA
     Dosage: FOR 4 WEEK
     Route: 058
  3. CYTARABINE. [Suspect]
     Active Substance: CYTARABINE
     Indication: CHRONIC MYELOID LEUKAEMIA
     Dosage: DAY 1 TO 10 FOR ATLEAST 12 MONTHS
     Route: 058

REACTIONS (11)
  - Fluid retention [Unknown]
  - Pyrexia [Unknown]
  - Hepatotoxicity [Unknown]
  - Mental disorder [Unknown]
  - Bone pain [Unknown]
  - Infection [Unknown]
  - Gastrointestinal toxicity [Unknown]
  - Muscle spasms [Unknown]
  - Haematotoxicity [Unknown]
  - Skin toxicity [Unknown]
  - Neurotoxicity [Unknown]
